FAERS Safety Report 9886471 (Version 4)
Quarter: 2014Q2

REPORT INFORMATION
  Report Type: Spontaneous
  Country: US (occurrence: US)
  Receive Date: 20140210
  Receipt Date: 20140506
  Transmission Date: 20141212
  Serious: Yes (Hospitalization, Other)
  Sender: FDA-Public Use
  Company Number: US-GILEAD-2014-0094073

PATIENT
  Sex: Male
  Weight: 73.16 kg

DRUGS (1)
  1. LETAIRIS [Suspect]
     Indication: PRODUCT USED FOR UNKNOWN INDICATION
     Dosage: 10 MG, QD
     Route: 048
     Dates: start: 20120427

REACTIONS (7)
  - Cardiac pacemaker insertion [Unknown]
  - Myocardial infarction [Unknown]
  - Decreased appetite [Unknown]
  - Stent placement [Unknown]
  - Dialysis [Unknown]
  - Weight decreased [Unknown]
  - Asthenia [Unknown]
